FAERS Safety Report 12323912 (Version 1)
Quarter: 2016Q2

REPORT INFORMATION
  Report Type: Spontaneous
  Country: US (occurrence: US)
  Receive Date: 20160502
  Receipt Date: 20160502
  Transmission Date: 20160815
  Serious: Yes (Other)
  Sender: FDA-Public Use
  Company Number: US-BAYER-2016-079682

PATIENT
  Age: 55 Year
  Sex: Female

DRUGS (2)
  1. NEXAVAR [Suspect]
     Active Substance: SORAFENIB
     Indication: CHONDROSARCOMA METASTATIC
     Dosage: 200 MG, BID
     Route: 048
     Dates: start: 20150324
  2. NEXAVAR [Suspect]
     Active Substance: SORAFENIB
     Indication: CHONDROSARCOMA METASTATIC
     Dosage: 400 MG, QD
     Route: 048
     Dates: start: 201503

REACTIONS (4)
  - Hilar lymphadenopathy [None]
  - Lymphadenopathy mediastinal [None]
  - Off label use [None]
  - Metastases to lung [None]

NARRATIVE: CASE EVENT DATE: 20160302
